FAERS Safety Report 8539850-9 (Version None)
Quarter: 2012Q3

REPORT INFORMATION
  Report Type: 
  Country: None (occurrence: None)
  Receive Date: 20120726
  Receipt Date: 20120716
  Transmission Date: 20120928
  Serious: Yes (Hospitalization, Other)
  Sender: FDA-Public Use
  Company Number: US-ASTRAZENECA-2011SE41977

PATIENT
  Age: 82 Year
  Sex: Female

DRUGS (4)
  1. SEROQUEL [Suspect]
     Route: 048
  2. SEROQUEL [Suspect]
     Indication: SCHIZOPHRENIA
     Route: 048
  3. SEROQUEL [Suspect]
     Indication: DEMENTIA
     Route: 048
  4. SEROQUEL [Suspect]
     Route: 048

REACTIONS (7)
  - DEMENTIA [None]
  - PARANOIA [None]
  - HIP FRACTURE [None]
  - DRUG DOSE OMISSION [None]
  - HALLUCINATION [None]
  - EPILEPSY [None]
  - OFF LABEL USE [None]
